FAERS Safety Report 18773070 (Version 1)
Quarter: 2021Q1

REPORT INFORMATION
  Report Type: Spontaneous
  Country: US (occurrence: US)
  Receive Date: 20210121
  Receipt Date: 20210121
  Transmission Date: 20210419
  Serious: No
  Sender: FDA-Public Use
  Company Number: None

PATIENT
  Age: 52 Year
  Sex: Female
  Weight: 94.7 kg

DRUGS (10)
  1. FERROUS SULFATE 325MG [Concomitant]
     Active Substance: FERROUS SULFATE
  2. NORCO [Concomitant]
     Active Substance: ACETAMINOPHEN\HYDROCODONE BITARTRATE
  3. TRAZODONE [Concomitant]
     Active Substance: TRAZODONE HYDROCHLORIDE
  4. ONDANSETRON 4MG [Concomitant]
     Active Substance: ONDANSETRON
  5. AMLODIPINE [Concomitant]
     Active Substance: AMLODIPINE BESYLATE
  6. IPRATROPIUM?ALBUTEROL 0.5?2.5MG/3ML [Concomitant]
  7. TYLENOL EXTRA STRENGTH [Concomitant]
     Active Substance: ACETAMINOPHEN
  8. IBRANCE [Suspect]
     Active Substance: PALBOCICLIB
     Indication: BREAST CANCER
     Route: 048
     Dates: start: 20201014
  9. CARVEDILOL 6.25MG [Concomitant]
     Active Substance: CARVEDILOL
  10. LETROZOLE 2.5MG [Concomitant]
     Active Substance: LETROZOLE

REACTIONS (2)
  - Rash [None]
  - Skin exfoliation [None]

NARRATIVE: CASE EVENT DATE: 20210121
